FAERS Safety Report 6701295-1 (Version None)
Quarter: 2010Q2

REPORT INFORMATION
  Report Type: 
  Country: None (occurrence: None)
  Receive Date: 20100429
  Receipt Date: 20100420
  Transmission Date: 20101027
  Serious: Yes (Hospitalization)
  Sender: FDA-Public Use
  Company Number: US-BIOGENIDEC-2009BI014506

PATIENT
  Age: 54 Year
  Sex: Male
  Weight: 77 kg

DRUGS (2)
  1. TYSABRI [Suspect]
     Indication: MULTIPLE SCLEROSIS
     Route: 042
     Dates: start: 20080401
  2. PROVIGIL [Concomitant]
     Indication: FATIGUE
     Dates: start: 20080101

REACTIONS (7)
  - CARDIAC DISORDER [None]
  - CARDIOVERSION [None]
  - CHEST PAIN [None]
  - ECHOCARDIOGRAM ABNORMAL [None]
  - FATIGUE [None]
  - INFUSION SITE SCAR [None]
  - MYOCARDIAL INFARCTION [None]
